FAERS Safety Report 5171750-7 (Version None)
Quarter: 2006Q4

REPORT INFORMATION
  Report Type: 
  Country: None (occurrence: None)
  Receive Date: 20061213
  Receipt Date: 20060615
  Transmission Date: 20070319
  Serious: No
  Sender: FDA-Public Use
  Company Number: US-AMGEN-KDL183162

PATIENT
  Sex: Female
  Weight: 75.8 kg

DRUGS (4)
  1. ENBREL [Suspect]
     Indication: RHEUMATOID ARTHRITIS
     Route: 058
     Dates: start: 20051201
  2. ZYRTEC [Concomitant]
  3. BENADRYL [Concomitant]
  4. TOPROL-XL [Concomitant]

REACTIONS (1)
  - INJECTION SITE REACTION [None]
